FAERS Safety Report 6419411-8 (Version None)
Quarter: 2009Q4

REPORT INFORMATION
  Report Type: 
  Country: None (occurrence: None)
  Receive Date: 20091027
  Receipt Date: 20091012
  Transmission Date: 20100525
  Serious: Yes (Life-Threatening, Hospitalization, Other)
  Sender: FDA-Public Use
  Company Number: AUR-APL-2009-00901

PATIENT
  Age: 57 Year
  Sex: Female

DRUGS (11)
  1. ATENOLOL [Suspect]
     Indication: HYPERTENSION
     Dosage: 100MG, DAILY
     Dates: start: 20070308, end: 20070422
  2. ATENOLOL [Suspect]
     Indication: HYPERTENSION
  3. METHYLPREDNISOLONE 4MG TAB [Concomitant]
  4. TACROLIMUS [Concomitant]
  5. MYCOPHENOLATE MOFETIL [Concomitant]
  6. PREDNISONE [Concomitant]
  7. SULFAMETHOXAZOLE [Concomitant]
  8. ASPIRIN [Concomitant]
  9. URSODEXOYCHOLIC ACID [Concomitant]
  10. VALGANCYLOVIR [Concomitant]
  11. ESOMEPRAZOLE MAGNESIUM [Concomitant]

REACTIONS (11)
  - ASCITES [None]
  - ASTHENIA [None]
  - CHOLESTASIS [None]
  - HEPATIC CIRRHOSIS [None]
  - HEPATIC FAILURE [None]
  - HEPATIC NECROSIS [None]
  - HEPATITIS TOXIC [None]
  - HYPERTENSION [None]
  - PLATELET COUNT DECREASED [None]
  - TRANSPLANT REJECTION [None]
  - WHITE BLOOD CELL COUNT DECREASED [None]
